FAERS Safety Report 13964654 (Version 4)
Quarter: 2018Q3

REPORT INFORMATION
  Report Type: Spontaneous
  Country: US (occurrence: US)
  Receive Date: 20170913
  Receipt Date: 20180714
  Transmission Date: 20181010
  Serious: No
  Sender: FDA-Public Use
  Company Number: US-JNJFOC-20170801063

PATIENT
  Age: 48 Year
  Sex: Female
  Weight: 47.63 kg

DRUGS (1)
  1. SIMPONI [Suspect]
     Active Substance: GOLIMUMAB
     Indication: RHEUMATOID ARTHRITIS
     Route: 058

REACTIONS (5)
  - Drug dose omission [Unknown]
  - Pain [Unknown]
  - Product storage error [Unknown]
  - Wrong technique in product usage process [Unknown]
  - Inappropriate schedule of drug administration [Unknown]

NARRATIVE: CASE EVENT DATE: 20170730
